FAERS Safety Report 21019896 (Version 1)
Quarter: 2022Q2

REPORT INFORMATION
  Report Type: Report from Study
  Country: US (occurrence: US)
  Receive Date: 20220628
  Receipt Date: 20220628
  Transmission Date: 20220721
  Serious: Yes (Other)
  Sender: FDA-Public Use
  Company Number: US-JAZZ-2022-US-010177

PATIENT
  Sex: Female

DRUGS (7)
  1. XYWAV [Suspect]
     Active Substance: CALCIUM OXYBATE\MAGNESIUM OXYBATE\POTASSIUM OXYBATE\SODIUM OXYBATE
     Indication: Hypersomnia
     Dosage: 2.25 GRAM, BID
     Route: 048
     Dates: start: 202109, end: 202110
  2. XYWAV [Suspect]
     Active Substance: CALCIUM OXYBATE\MAGNESIUM OXYBATE\POTASSIUM OXYBATE\SODIUM OXYBATE
     Dosage: DOSE ADJUSTMENT
     Route: 048
     Dates: start: 202110, end: 202111
  3. XYWAV [Suspect]
     Active Substance: CALCIUM OXYBATE\MAGNESIUM OXYBATE\POTASSIUM OXYBATE\SODIUM OXYBATE
     Dosage: 3 GRAM, BID
     Route: 048
     Dates: start: 202111
  4. XYWAV [Suspect]
     Active Substance: CALCIUM OXYBATE\MAGNESIUM OXYBATE\POTASSIUM OXYBATE\SODIUM OXYBATE
     Dosage: 1.75 GRAM
     Route: 048
  5. ARMODAFINIL [Concomitant]
     Active Substance: ARMODAFINIL
     Indication: Product used for unknown indication
     Dosage: UNK
     Dates: start: 20210908
  6. NAC [DICLOFENAC SODIUM] [Concomitant]
     Indication: Product used for unknown indication
     Dosage: CAPLET
     Dates: start: 20210701
  7. VITAMIN D3 [Concomitant]
     Active Substance: CHOLECALCIFEROL
     Indication: Product used for unknown indication
     Dosage: UNK
     Dates: start: 20210929

REACTIONS (15)
  - Suicidal ideation [Recovered/Resolved]
  - Cataplexy [Unknown]
  - Depression [Recovered/Resolved]
  - Illness [Unknown]
  - Feeling cold [Unknown]
  - Oropharyngeal pain [Unknown]
  - Dysphemia [Unknown]
  - Dehydration [Unknown]
  - Headache [Recovered/Resolved]
  - Hepatic pain [Unknown]
  - Biliary colic [Unknown]
  - Blood pressure decreased [Unknown]
  - Adenomyosis [Unknown]
  - Withdrawal syndrome [Unknown]
  - Drug titration error [Unknown]
